FAERS Safety Report 12371101 (Version 2)
Quarter: 2016Q2

REPORT INFORMATION
  Report Type: Spontaneous
  Country: BR (occurrence: BR)
  Receive Date: 20160516
  Receipt Date: 20160524
  Transmission Date: 20160815
  Serious: Yes (Other)
  Sender: FDA-Public Use
  Company Number: BR-AMGEN-BRASP2016061552

PATIENT
  Age: 53 Year
  Sex: Female
  Weight: 78 kg

DRUGS (10)
  1. DULOXETINE. [Concomitant]
     Active Substance: DULOXETINE
     Dosage: 30 MG, UNK
  2. CALTRATE                           /00944201/ [Concomitant]
     Dosage: UNK
  3. ALPRAZOLAM. [Concomitant]
     Active Substance: ALPRAZOLAM
     Indication: PAIN
     Dosage: 2 MG, USED ON HER OWN ACCOUNT
  4. TRAMAL [Concomitant]
     Active Substance: TRAMADOL
     Dosage: 100 MG, UNK
  5. ALPRAZOLAM. [Concomitant]
     Active Substance: ALPRAZOLAM
     Dosage: 2 MG, USED ON HER OWN ACCOUNT
  6. ACTONEL [Concomitant]
     Active Substance: RISEDRONATE SODIUM
     Dosage: 35 MG, UNK
  7. ENBREL [Suspect]
     Active Substance: ETANERCEPT
     Indication: PSORIATIC ARTHROPATHY
     Dosage: 50 MG, 1X/WEEK
     Route: 065
     Dates: start: 2014
  8. VITAMIN D                          /00107901/ [Concomitant]
     Active Substance: ERGOCALCIFEROL
     Dosage: UNK
  9. DULOXETINE. [Concomitant]
     Active Substance: DULOXETINE
     Dosage: 30 MG, UNK
     Dates: start: 201604
  10. TRAMAL [Concomitant]
     Active Substance: TRAMADOL
     Dosage: 100 MG, UNK
     Dates: start: 2016

REACTIONS (11)
  - Myositis [Unknown]
  - Osteonecrosis [Unknown]
  - Intervertebral disc protrusion [Unknown]
  - Stress [Unknown]
  - Back pain [Unknown]
  - Pain [Unknown]
  - Necrosis [Unknown]
  - Tension [Unknown]
  - Sciatica [Unknown]
  - Activities of daily living impaired [Not Recovered/Not Resolved]
  - Muscle oedema [Unknown]

NARRATIVE: CASE EVENT DATE: 201506
